FAERS Safety Report 8489085-3 (Version None)
Quarter: 2012Q3

REPORT INFORMATION
  Report Type: 
  Country: None (occurrence: None)
  Receive Date: 20120705
  Receipt Date: 20120628
  Transmission Date: 20120928
  Serious: Yes (Hospitalization)
  Sender: FDA-Public Use
  Company Number: JP-BAYER-2012-061622

PATIENT
  Age: 81 Year
  Sex: Female
  Weight: 45 kg

DRUGS (5)
  1. AVELOX [Suspect]
     Indication: PNEUMONIA
     Dosage: 400 MG, QD
     Route: 048
     Dates: start: 20120104, end: 20120110
  2. OMEGACIN [Suspect]
     Indication: PNEUMONIA
     Dosage: UNK
     Route: 041
     Dates: start: 20120101, end: 20120110
  3. MEIACT [Concomitant]
     Indication: PYREXIA
     Dosage: UNK
     Route: 048
     Dates: start: 20111229
  4. ACETAMINOPHEN [Concomitant]
     Indication: PYREXIA
     Dosage: UNK
     Route: 048
     Dates: start: 20111229
  5. CIPROFLOXACIN HYDROCHLORIDE [Suspect]
     Indication: PNEUMONIA
     Dosage: UNK
     Dates: start: 20120110, end: 20120124

REACTIONS (5)
  - APPETITE DISORDER [None]
  - PNEUMONIA [None]
  - ABDOMINAL DISCOMFORT [None]
  - DIARRHOEA [None]
  - INTERSTITIAL LUNG DISEASE [None]
